FAERS Safety Report 8455007-4 (Version None)
Quarter: 2012Q2

REPORT INFORMATION
  Report Type: 
  Country: None (occurrence: None)
  Receive Date: 20120614
  Receipt Date: 20120614
  Transmission Date: 20120825
  Serious: Yes (Other)
  Sender: FDA-Public Use
  Company Number: None

PATIENT
  Sex: Female

DRUGS (1)
  1. MISOPROSTOL [Suspect]
     Indication: THERAPEUTIC PROCEDURE
     Dosage: 200 MICROGRAMS ONCE PO; ONE TIME
     Route: 048
     Dates: start: 20120612

REACTIONS (5)
  - VAGINAL HAEMORRHAGE [None]
  - NAUSEA [None]
  - VOMITING [None]
  - PARAESTHESIA [None]
  - ABDOMINAL PAIN [None]
